FAERS Safety Report 5821130-3 (Version None)
Quarter: 2008Q3

REPORT INFORMATION
  Report Type: 
  Country: None (occurrence: None)
  Receive Date: 20080724
  Receipt Date: 20080715
  Transmission Date: 20090109
  Serious: Yes (Other)
  Sender: FDA-Public Use
  Company Number: GB-WYE-H04242908

PATIENT
  Age: 18 Year
  Sex: Male

DRUGS (2)
  1. IBUPROFEN TABLETS [Suspect]
     Indication: TOOTHACHE
     Dosage: UNKNOWN
     Route: 048
  2. NUROFEN [Suspect]
     Indication: TOOTHACHE
     Dosage: UNKNOWN
     Route: 048

REACTIONS (1)
  - OESOPHAGEAL PERFORATION [None]
